FAERS Safety Report 21772014 (Version 2)
Quarter: 2023Q1

REPORT INFORMATION
  Report Type: Report from Study
  Country: US (occurrence: US)
  Receive Date: 20221223
  Receipt Date: 20230215
  Transmission Date: 20230418
  Serious: Yes (Other)
  Sender: FDA-Public Use
  Company Number: US-TAKEDA-2020TUS042690

PATIENT
  Age: 68 Year
  Sex: Female
  Weight: 79.819 kg

DRUGS (2)
  1. VEDOLIZUMAB [Suspect]
     Active Substance: VEDOLIZUMAB
     Indication: Crohn^s disease
     Dosage: 300 MILLIGRAM
     Route: 042
     Dates: start: 20200916
  2. VEDOLIZUMAB [Suspect]
     Active Substance: VEDOLIZUMAB
     Indication: Colitis ulcerative

REACTIONS (43)
  - Colitis ulcerative [Unknown]
  - Rectal ulcer [Unknown]
  - Retinal tear [Unknown]
  - Breast cancer female [Unknown]
  - Anorectal swelling [Unknown]
  - Infusion site swelling [Unknown]
  - Sciatica [Unknown]
  - Rectocele [Unknown]
  - Weight increased [Unknown]
  - Rash papular [Recovering/Resolving]
  - Hunger [Unknown]
  - Skin infection [Unknown]
  - Speech disorder [Unknown]
  - Memory impairment [Unknown]
  - Sleep disorder [Unknown]
  - Vertigo [Unknown]
  - Weight decreased [Unknown]
  - Somnolence [Unknown]
  - Body height decreased [Unknown]
  - Middle insomnia [Unknown]
  - Bladder neoplasm [Unknown]
  - Disturbance in attention [Unknown]
  - Anxiety [Unknown]
  - Rhinorrhoea [Unknown]
  - Abdominal pain [Unknown]
  - Ear pain [Unknown]
  - Infusion site pain [Unknown]
  - Nasal congestion [Unknown]
  - Constipation [Unknown]
  - Haemorrhoids [Unknown]
  - Headache [Unknown]
  - Fatigue [Unknown]
  - Dyspnoea [Unknown]
  - Malaise [Unknown]
  - Emotional distress [Unknown]
  - Hypophagia [Unknown]
  - Pain [Unknown]
  - Dizziness [Unknown]
  - Balance disorder [Unknown]
  - Arthralgia [Unknown]
  - Dyschezia [Unknown]
  - Illness [Unknown]
  - Inappropriate schedule of product administration [Unknown]

NARRATIVE: CASE EVENT DATE: 20200925
